FAERS Safety Report 5493345-8 (Version None)
Quarter: 2007Q4

REPORT INFORMATION
  Report Type: 
  Country: None (occurrence: None)
  Receive Date: 20071022
  Receipt Date: 20071022
  Transmission Date: 20080405
  Serious: Yes (Other)
  Sender: FDA-Public Use
  Company Number: None

PATIENT
  Age: 27 Year
  Sex: Female

DRUGS (1)
  1. PHENYTOIN [Suspect]
     Dates: start: 20061205, end: 20070128

REACTIONS (18)
  - CHEST PAIN [None]
  - CRYPTOGENIC ORGANISING PNEUMONIA [None]
  - CYTOMEGALOVIRUS ANTIBODY POSITIVE [None]
  - CYTOMEGALOVIRUS INFECTION [None]
  - DRUG HYPERSENSITIVITY [None]
  - DRUG RASH WITH EOSINOPHILIA AND SYSTEMIC SYMPTOMS [None]
  - DRUG TOXICITY [None]
  - HEPATIC NECROSIS [None]
  - HEPATITIS [None]
  - HYPOCALCAEMIA [None]
  - HYPOMAGNESAEMIA [None]
  - HYPOPHOSPHATAEMIA [None]
  - LEUKOCYTOSIS [None]
  - LIVER INJURY [None]
  - PNEUMONIA [None]
  - RESPIRATORY FAILURE [None]
  - SYNCOPE [None]
  - VITAMIN D DEFICIENCY [None]
